FAERS Safety Report 10706919 (Version 2)
Quarter: 2015Q1

REPORT INFORMATION
  Report Type: Report from Study
  Country: CN (occurrence: CN)
  Receive Date: 20150113
  Receipt Date: 20150113
  Transmission Date: 20150721
  Serious: Yes (Death, Hospitalization)
  Sender: FDA-Public Use
  Company Number: PHHY2014CN105307

PATIENT
  Age: 76 Year
  Sex: Male
  Weight: 63 kg

DRUGS (5)
  1. MADOPAR [Concomitant]
     Active Substance: BENSERAZIDE HYDROCHLORIDE\LEVODOPA
     Indication: PARKINSON^S DISEASE
     Dosage: 300 MG, UNK
     Route: 065
     Dates: start: 200304
  2. COMTAN [Suspect]
     Active Substance: ENTACAPONE
     Indication: DRUG EFFECT DECREASED
  3. DEPRENYL [Concomitant]
     Active Substance: DEPRENYL
     Indication: PARKINSON^S DISEASE
     Dosage: 5 MG, UNK
     Route: 065
     Dates: start: 2011
  4. COMTAN [Suspect]
     Active Substance: ENTACAPONE
     Indication: PARKINSON^S DISEASE
     Dosage: 300 MG, TID
     Route: 048
     Dates: start: 20140728, end: 20140901
  5. CIFROL [Concomitant]
     Indication: PARKINSON^S DISEASE
     Dosage: 0.75 MG, UNK
     Route: 065
     Dates: start: 2011

REACTIONS (3)
  - Leukaemia monocytic [Fatal]
  - Dysuria [Unknown]
  - Urethral haemorrhage [Recovering/Resolving]

NARRATIVE: CASE EVENT DATE: 20140815
